FAERS Safety Report 25665087 (Version 1)
Quarter: 2025Q3

REPORT INFORMATION
  Report Type: Spontaneous
  Country: EU (occurrence: EU)
  Receive Date: 20250811
  Receipt Date: 20250811
  Transmission Date: 20251021
  Serious: Yes (Life-Threatening, Hospitalization)
  Sender: TEVA
  Company Number: None

PATIENT
  Age: 68 Year
  Sex: Male

DRUGS (6)
  1. QUETIAPINE [Interacting]
     Active Substance: QUETIAPINE
     Indication: Schizophrenia
     Dosage: QUETIAPINE (1136A)
     Route: 048
     Dates: start: 20250523, end: 20250528
  2. RIVOTRIL [Interacting]
     Active Substance: CLONAZEPAM
     Indication: Schizophrenia
     Route: 048
     Dates: start: 20250515, end: 20250528
  3. VALPROATE SODIUM [Interacting]
     Active Substance: VALPROATE SODIUM
     Indication: Schizophrenia
     Dosage: SODIUM VALPROATE (3194SO)
     Route: 048
     Dates: start: 20250515, end: 20250528
  4. CLOMETHIAZOLE [Interacting]
     Active Substance: CLOMETHIAZOLE
     Indication: Schizophrenia
     Route: 048
     Dates: start: 20250515, end: 20250528
  5. QUETIAPINE [Concomitant]
     Active Substance: QUETIAPINE
     Indication: Schizophrenia
     Dosage: QUETIAPINE (1136A)
     Route: 048
     Dates: start: 202303, end: 20250515
  6. LEVOMEPROMAZINE [Interacting]
     Active Substance: LEVOMEPROMAZINE
     Indication: Schizophrenia
     Route: 048
     Dates: start: 20250515, end: 20250528

REACTIONS (2)
  - Depressed level of consciousness [Recovered/Resolved]
  - Pneumonia aspiration [Recovered/Resolved]

NARRATIVE: CASE EVENT DATE: 20250528
